FAERS Safety Report 23004272 (Version 2)
Quarter: 2023Q4

REPORT INFORMATION
  Report Type: Spontaneous
  Country: US (occurrence: US)
  Receive Date: 20230928
  Receipt Date: 20231027
  Transmission Date: 20240109
  Serious: Yes (Other)
  Sender: FDA-Public Use
  Company Number: US-BAUSCH-BL-2023-014208

PATIENT
  Age: 71 Year
  Sex: Female

DRUGS (1)
  1. NITROPRUSSIDE [Suspect]
     Active Substance: NITROPRUSSIDE
     Indication: Cardiogenic shock
     Dosage: RANGE: 0.25-3 MCG/ KG/MIN; NITROPRUSSIDE INFUSION
     Route: 042

REACTIONS (3)
  - Renal failure [Recovered/Resolved]
  - Mental status changes [Recovered/Resolved]
  - Toxicity to various agents [Recovered/Resolved]
